FAERS Safety Report 20517828 (Version 1)
Quarter: 2022Q1

REPORT INFORMATION
  Report Type: Spontaneous
  Country: US (occurrence: None)
  Receive Date: 20220224
  Receipt Date: 20220224
  Transmission Date: 20220424
  Serious: No
  Sender: FDA-Public Use
  Company Number: None

PATIENT
  Sex: Male
  Weight: 140.61 kg

DRUGS (14)
  1. IMATINIB MESYLATE [Suspect]
     Active Substance: IMATINIB MESYLATE
     Indication: Chronic myeloid leukaemia
     Dosage: FREQUENCY : ONCE;?
     Route: 048
     Dates: start: 20210604
  2. ATENOLOL [Concomitant]
     Active Substance: ATENOLOL
  3. ATORVASTATIN [Concomitant]
     Active Substance: ATORVASTATIN
  4. DICLOFENAC [Concomitant]
     Active Substance: DICLOFENAC
  5. DIOVAN [Concomitant]
     Active Substance: VALSARTAN
  6. FLUTICASONE [Concomitant]
     Active Substance: FLUTICASONE
  7. GLUCOPHAGE [Concomitant]
     Active Substance: METFORMIN HYDROCHLORIDE
  8. LEVAQUIN [Concomitant]
     Active Substance: LEVOFLOXACIN
  9. LEVEMIR [Concomitant]
     Active Substance: INSULIN DETEMIR
  10. MORPHINE [Concomitant]
     Active Substance: MORPHINE
  11. nystatin-triamcinolone [Concomitant]
  12. ploglitazone [Concomitant]
  13. PROTONIX [Concomitant]
     Active Substance: PANTOPRAZOLE SODIUM
  14. zolpldem [Concomitant]

REACTIONS (1)
  - Death [None]
